FAERS Safety Report 5084130-X (Version None)
Quarter: 2006Q3

REPORT INFORMATION
  Report Type: 
  Country: None (occurrence: None)
  Receive Date: 20060816
  Receipt Date: 20060808
  Transmission Date: 20061208
  Serious: Yes (Hospitalization)
  Sender: FDA-Public Use
  Company Number: 228534

PATIENT
  Age: 27 Year
  Sex: Female
  Weight: 59 kg

DRUGS (7)
  1. XOLAIR [Suspect]
     Indication: ASTHMA
     Dosage: 300 MG Q4W SUBCUTANEOUS
     Route: 058
     Dates: start: 20050510
  2. VERAPAMIL [Concomitant]
  3. YASMIN [Concomitant]
  4. PULMICORT [Concomitant]
  5. NASACORT [Concomitant]
  6. CLARINEX [Concomitant]
  7. ALBUTEROL (ALBUTEROL/ALBUTER SULFATE) [Concomitant]

REACTIONS (1)
  - RETINAL DETACHMENT [None]
